FAERS Safety Report 22400765 (Version 1)
Quarter: 2023Q2

REPORT INFORMATION
  Report Type: Spontaneous
  Country: US (occurrence: US)
  Receive Date: 20230602
  Receipt Date: 20230602
  Transmission Date: 20230722
  Serious: No
  Sender: FDA-Public Use
  Company Number: US-PFIZER INC-PV202300079635

PATIENT
  Age: 77 Year
  Sex: Female

DRUGS (2)
  1. IBRANCE [Suspect]
     Active Substance: PALBOCICLIB
     Dosage: 125 MG, 1X/DAY X 28 DAYS, THE MORNING
     Route: 048
  2. IBRANCE [Suspect]
     Active Substance: PALBOCICLIB
     Dosage: 125 MG, 1X/DAY X 28 DAYS, THE EVENING
     Route: 048

REACTIONS (4)
  - Decreased activity [Unknown]
  - Somnolence [Unknown]
  - Fatigue [Unknown]
  - Product dose omission in error [Unknown]
